FAERS Safety Report 23124526 (Version 1)
Quarter: 2023Q4

REPORT INFORMATION
  Report Type: Spontaneous
  Country: US (occurrence: None)
  Receive Date: 20231029
  Receipt Date: 20231029
  Transmission Date: 20240109
  Serious: Yes (Life-Threatening, Hospitalization, Other)
  Sender: FDA-Public Use
  Company Number: None

PATIENT
  Age: 31 Year
  Sex: Male
  Weight: 79 kg

DRUGS (1)
  1. PAXLOVID [Suspect]
     Active Substance: NIRMATRELVIR\RITONAVIR
     Indication: COVID-19
     Dates: start: 20230104, end: 20230104

REACTIONS (6)
  - Malaise [None]
  - Dizziness [None]
  - Vomiting [None]
  - Dysgeusia [None]
  - Heart rate decreased [None]
  - Monoplegia [None]

NARRATIVE: CASE EVENT DATE: 20230104
